FAERS Safety Report 9315492 (Version 5)
Quarter: 2013Q4

REPORT INFORMATION
  Report Type: Spontaneous
  Country: JP (occurrence: JP)
  Receive Date: 20130529
  Receipt Date: 20131205
  Transmission Date: 20140711
  Serious: Yes (Hospitalization, Other)
  Sender: FDA-Public Use
  Company Number: JP-B.I. PHARMACEUTICALS,INC./RIDGEFIELD-2013-BI-13388NB

PATIENT
  Age: 76 Year
  Sex: Male
  Weight: 60 kg

DRUGS (3)
  1. PRAZAXA [Suspect]
     Indication: ATRIAL FIBRILLATION
     Dosage: 220 MG
     Route: 048
     Dates: start: 201206, end: 20130419
  2. FAMOTIDINE/FAMOTIDINE [Concomitant]
  3. URIEF/SILODOSIN [Concomitant]
     Dosage: 4 MG

REACTIONS (6)
  - Renal failure acute [Recovered/Resolved]
  - Renal haemorrhage [Not Recovered/Not Resolved]
  - Coagulation test abnormal [Unknown]
  - Blood creatinine increased [Recovered/Resolved]
  - Decreased appetite [Unknown]
  - Malaise [Unknown]
